FAERS Safety Report 18666127 (Version 1)
Quarter: 2020Q4

REPORT INFORMATION
  Report Type: Spontaneous
  Country: GB (occurrence: GB)
  Receive Date: 20201226
  Receipt Date: 20201226
  Transmission Date: 20210114
  Serious: Yes (Hospitalization, Disabling, Other)
  Sender: FDA-Public Use
  Company Number: GB-TEVA-2020-GB-1861466

PATIENT
  Age: 27 Year
  Sex: Female
  Weight: 53.52 kg

DRUGS (2)
  1. NITROFURANTOIN. [Suspect]
     Active Substance: NITROFURANTOIN
     Indication: URINARY TRACT INFECTION
     Dosage: 200 MG
     Route: 048
     Dates: start: 20201124, end: 20201124
  2. IBUPROFEN. [Concomitant]
     Active Substance: IBUPROFEN

REACTIONS (20)
  - Rash [Unknown]
  - Heart rate increased [Unknown]
  - Headache [Unknown]
  - Fatigue [Unknown]
  - Abdominal pain [Unknown]
  - Constipation [Unknown]
  - Ear discomfort [Not Recovered/Not Resolved]
  - Dyspepsia [Unknown]
  - Hypoaesthesia [Unknown]
  - Panic attack [Unknown]
  - Decreased appetite [Unknown]
  - Chest pain [Recovered/Resolved with Sequelae]
  - Diarrhoea [Unknown]
  - Flatulence [Unknown]
  - Pyrexia [Unknown]
  - Neuritis [Unknown]
  - Tremor [Unknown]
  - Cognitive disorder [Unknown]
  - Pain in jaw [Unknown]
  - Non-cardiac chest pain [Recovered/Resolved with Sequelae]

NARRATIVE: CASE EVENT DATE: 20201124
